FAERS Safety Report 9525458 (Version 1)
Quarter: 2013Q3

REPORT INFORMATION
  Report Type: Spontaneous
  Country: US (occurrence: None)
  Receive Date: 20130912
  Receipt Date: 20130912
  Transmission Date: 20140515
  Serious: Yes (Hospitalization, Other)
  Sender: FDA-Public Use
  Company Number: FK201303935

PATIENT
  Sex: Female

DRUGS (6)
  1. PROPOFOL [Suspect]
     Indication: ANAESTHESIA
     Dosage: TOTAL DOSE
  2. PROPOFOL [Suspect]
     Indication: SEDATION
     Dosage: TOTAL DOSE
  3. WELLBUTRIN [Suspect]
     Indication: DEPRESSION
     Route: 048
  4. MIDAZOLAM (MIDAZOLAM) [Concomitant]
  5. FENTANYL (FENTANYL) [Concomitant]
  6. LIDOCAINE (LIDOCAINE) [Concomitant]

REACTIONS (4)
  - Drug interaction [None]
  - Convulsion [None]
  - Communication disorder [None]
  - Uterine dilation and curettage [None]
